FAERS Safety Report 24400341 (Version 3)
Quarter: 2024Q4

REPORT INFORMATION
  Report Type: Spontaneous
  Country: US (occurrence: US)
  Receive Date: 20241005
  Receipt Date: 20241110
  Transmission Date: 20250115
  Serious: No
  Sender: SANOFI AVENTIS
  Company Number: US-SA-2024SA285672

PATIENT
  Age: 73 Year
  Sex: Female

DRUGS (7)
  1. DUPIXENT [Suspect]
     Active Substance: DUPILUMAB
     Indication: Neurodermatitis
     Dosage: 300 MG, QOW
     Route: 058
  2. DUPIXENT [Suspect]
     Active Substance: DUPILUMAB
     Indication: Asthma
  3. DUPIXENT [Suspect]
     Active Substance: DUPILUMAB
     Indication: Hypersensitivity
  4. DUPIXENT [Suspect]
     Active Substance: DUPILUMAB
     Indication: Rash
  5. DUPIXENT [Suspect]
     Active Substance: DUPILUMAB
     Indication: Urticaria
  6. DUPIXENT [Suspect]
     Active Substance: DUPILUMAB
     Indication: Chronic obstructive pulmonary disease
  7. DUPIXENT [Suspect]
     Active Substance: DUPILUMAB
     Indication: Pruritus

REACTIONS (8)
  - Nausea [Unknown]
  - Skin haemorrhage [Unknown]
  - Dry skin [Unknown]
  - Skin weeping [Unknown]
  - Skin fissures [Unknown]
  - Sleep disorder [Unknown]
  - Skin exfoliation [Unknown]
  - Off label use [Unknown]
